FAERS Safety Report 18480707 (Version 2)
Quarter: 2021Q1

REPORT INFORMATION
  Report Type: Spontaneous
  Country: JP (occurrence: JP)
  Receive Date: 20201109
  Receipt Date: 20210324
  Transmission Date: 20210419
  Serious: Yes (Other)
  Sender: FDA-Public Use
  Company Number: JP-009507513-2011JPN000093J

PATIENT
  Age: 7 Decade
  Sex: Male

DRUGS (1)
  1. KEYTRUDA [Suspect]
     Active Substance: PEMBROLIZUMAB
     Indication: HEAD AND NECK CANCER STAGE IV
     Dosage: 200 MILLIGRAM, Q3W
     Route: 041

REACTIONS (1)
  - Melaena [Recovered/Resolved]

NARRATIVE: CASE EVENT DATE: 202010
